FAERS Safety Report 4879048-9 (Version None)
Quarter: 2005Q4

REPORT INFORMATION
  Report Type: 
  Country: None (occurrence: None)
  Receive Date: 20051209
  Receipt Date: 20050602
  Transmission Date: 20060501
  Serious: Yes (Death, Other)
  Sender: FDA-Public Use
  Company Number: USA-2005-0019115

PATIENT
  Age: 23 Year
  Sex: Male
  Weight: 68 kg

DRUGS (6)
  1. OXYCONTIN [Suspect]
     Dosage: NASAL
     Route: 045
  2. OXYMORPHONE HYDROCHLORIDE [Suspect]
  3. MARIJUANA (CANNABIS0 [Suspect]
     Dosage: INHALATION
     Route: 055
  4. ALCOHOL (ETHANOL) [Suspect]
     Dosage: ORAL
     Route: 048
  5. CAFFEINE (CAFFEINE) [Suspect]
  6. CARBONE MONOXIDE) [Suspect]

REACTIONS (4)
  - CARDIAC ARREST [None]
  - COMA [None]
  - MULTIPLE DRUG OVERDOSE ACCIDENTAL [None]
  - POLYSUBSTANCE ABUSE [None]
